FAERS Safety Report 6253328-7 (Version None)
Quarter: 2009Q3

REPORT INFORMATION
  Report Type: 
  Country: None (occurrence: None)
  Receive Date: 20090701
  Receipt Date: 20090626
  Transmission Date: 20100115
  Serious: Yes (Hospitalization)
  Sender: FDA-Public Use
  Company Number: DE-WYE-G03931709

PATIENT
  Age: 51 Year
  Sex: Female
  Weight: 85.4 kg

DRUGS (16)
  1. VENLAFAXINE HCL [Suspect]
     Indication: DEPRESSION
     Route: 048
     Dates: start: 20081222, end: 20081229
  2. VENLAFAXINE HCL [Interacting]
     Indication: PSYCHOTIC DISORDER
     Route: 048
     Dates: start: 20081230, end: 20090102
  3. VENLAFAXINE HCL [Interacting]
     Route: 048
     Dates: start: 20090103, end: 20090111
  4. VENLAFAXINE HCL [Interacting]
     Route: 048
     Dates: start: 20090115, end: 20090120
  5. TAVOR [Concomitant]
     Dosage: 3 MG PER DAY FOR A LONGER PERIOD OF TIME UNTIL 22-DEC-2008
     Route: 048
  6. TAVOR [Concomitant]
     Route: 048
     Dates: start: 20081223, end: 20081228
  7. TAVOR [Concomitant]
     Route: 048
     Dates: start: 20081229, end: 20090104
  8. TAVOR [Concomitant]
     Route: 048
     Dates: start: 20090105, end: 20090107
  9. TAVOR [Concomitant]
     Route: 048
     Dates: start: 20090108, end: 20090118
  10. TAVOR [Concomitant]
     Route: 048
     Dates: start: 20090119, end: 20090127
  11. LEVOTHYROXINE SODIUM [Concomitant]
     Indication: HYPOTHYROIDISM
     Dosage: 125 ?G PER DAY FOR A LONGER PERIOD OF TIME UNTIL 26-JAN-2009
     Route: 048
  12. LITHIUM CARBONATE [Interacting]
     Dosage: 800 MG PER DAY FOR A LONGER PERIOD OF TIME UNTIL 04-JAN-2009
     Route: 048
  13. LITHIUM CARBONATE [Interacting]
     Dosage: 1000 MG PER DAY FROM 05-JAN-2009 TO 17-JAN-2009
     Route: 048
  14. ZOPICLONE [Concomitant]
     Dosage: 7.5 MG PER DAY FOR A LONGER PERIOD OF TIME UNTIL 17-JAN-2009
     Route: 048
  15. FLUOXETINE HYDROCHLORIDE [Interacting]
     Dosage: 60 MG PER DAY FOR SEVERAL YEARS UNTIL 30-DEC-2008
     Route: 048
  16. BISOPROLOL [Concomitant]
     Indication: HYPERTENSION
     Dosage: 2.5 MG PER DAY FOR SEVERAL YEARS, CONTINUING
     Route: 048

REACTIONS (3)
  - ANTIDEPRESSANT DRUG LEVEL INCREASED [None]
  - DRUG INTERACTION [None]
  - SEROTONIN SYNDROME [None]
